FAERS Safety Report 6534698-9 (Version None)
Quarter: 2010Q1

REPORT INFORMATION
  Report Type: 
  Country: None (occurrence: None)
  Receive Date: 20100112
  Receipt Date: 20100108
  Transmission Date: 20100710
  Serious: Yes (Hospitalization)
  Sender: FDA-Public Use
  Company Number: GB-EISAI INC.-E2090-00943-SPO-GB

PATIENT
  Age: 30 Year
  Sex: Female

DRUGS (5)
  1. ZONEGRAN [Suspect]
     Indication: EPILEPSY
     Route: 048
  2. ZONEGRAN [Suspect]
     Dosage: BEING REDUCED
     Route: 048
  3. LACOSAMIDE [Concomitant]
     Indication: EPILEPSY
     Route: 048
  4. TEGRETOL RETARD [Concomitant]
     Indication: EPILEPSY
     Route: 048
  5. CLONAZEPAM [Concomitant]
     Indication: EPILEPSY
     Route: 048

REACTIONS (2)
  - STATUS EPILEPTICUS [None]
  - WITHDRAWAL SYNDROME [None]
